FAERS Safety Report 13328980 (Version 2)
Quarter: 2017Q1

REPORT INFORMATION
  Report Type: Spontaneous
  Country: GB (occurrence: GB)
  Receive Date: 20170313
  Receipt Date: 20170328
  Transmission Date: 20170428
  Serious: Yes (Hospitalization)
  Sender: FDA-Public Use
  Company Number: GB-AUROBINDO-AUR-APL-2017-30607

PATIENT
  Age: 83 Year
  Sex: Female

DRUGS (1)
  1. CIPROFLOXACIN FILM-COATED TABLETS [Suspect]
     Active Substance: CIPROFLOXACIN
     Indication: PRODUCT USED FOR UNKNOWN INDICATION
     Dosage: 1 DF, UNK

REACTIONS (11)
  - Inflammation [Unknown]
  - Haemorrhage [Unknown]
  - Impaired healing [Unknown]
  - Emotional disorder [Unknown]
  - Skin ulcer [Unknown]
  - Pain in extremity [Unknown]
  - Muscular weakness [Unknown]
  - Arthritis [Unknown]
  - Crying [Unknown]
  - Paraesthesia [Unknown]
  - Peripheral swelling [Unknown]
